FAERS Safety Report 5716075-3 (Version None)
Quarter: 2008Q2

REPORT INFORMATION
  Report Type: 
  Country: None (occurrence: None)
  Receive Date: 20080423
  Receipt Date: 20080423
  Transmission Date: 20081010
  Serious: Yes (Other)
  Sender: FDA-Public Use
  Company Number: None

PATIENT
  Age: 9 Year
  Sex: Male
  Weight: 34.0198 kg

DRUGS (1)
  1. ROZEREM [Suspect]
     Indication: DELAYED SLEEP PHASE
     Dosage: ONE QHS PO
     Route: 048
     Dates: start: 20080314, end: 20080414

REACTIONS (1)
  - PRIAPISM [None]
